FAERS Safety Report 9119845 (Version 2)
Quarter: 2013Q1

REPORT INFORMATION
  Report Type: Spontaneous
  Country: US (occurrence: US)
  Receive Date: 20130226
  Receipt Date: 20130311
  Transmission Date: 20140127
  Serious: No
  Sender: FDA-Public Use
  Company Number: US-PFIZER INC-2013066809

PATIENT
  Age: 70 Year
  Sex: Female

DRUGS (9)
  1. SUTENT [Suspect]
     Indication: RENAL CANCER
     Dosage: 50 MG, UNK
     Dates: start: 20130221
  2. AMLODIPINE BESILATE [Concomitant]
     Dosage: UNK
  3. ASTRAGALUS EXTRACT [Concomitant]
     Dosage: UNK
  4. COLACE [Concomitant]
     Dosage: UNK
  5. IBUPROFEN [Concomitant]
     Dosage: UNK
  6. IRON [Concomitant]
     Dosage: UNK
  7. METOPROLOL TARTRATE [Concomitant]
     Dosage: UNK
  8. VITAMIN D3 [Concomitant]
     Dosage: UNK
  9. ZINC PYRITHIONE [Concomitant]
     Dosage: UNK

REACTIONS (6)
  - Fatigue [Unknown]
  - Stomatitis [Unknown]
  - Constipation [Unknown]
  - Diarrhoea [Unknown]
  - Eye swelling [Unknown]
  - Dysgeusia [Unknown]
